FAERS Safety Report 4391132-5 (Version None)
Quarter: 2004Q2

REPORT INFORMATION
  Report Type: 
  Country: None (occurrence: None)
  Receive Date: 20040621
  Receipt Date: 20031201
  Transmission Date: 20050107
  Serious: Yes (Death)
  Sender: FDA-Public Use
  Company Number: USA-2003-0011589

PATIENT
  Age: 46 Year
  Sex: Male
  Weight: 83 kg

DRUGS (5)
  1. OXYCODONE HCL [Suspect]
     Dosage: UNK MG
  2. HYDROCODONE BITARTRATE [Suspect]
     Dosage: UNK MG
  3. ACETAMINOPHEN [Suspect]
  4. CANNABIS (CANNABIS) [Suspect]
  5. IBUPROFEN [Suspect]

REACTIONS (1)
  - ACCIDENTAL OVERDOSE [None]
